FAERS Safety Report 8272484-2 (Version None)
Quarter: 2012Q2

REPORT INFORMATION
  Report Type: 
  Country: None (occurrence: None)
  Receive Date: 20120410
  Receipt Date: 20120118
  Transmission Date: 20120825
  Serious: No
  Sender: FDA-Public Use
  Company Number: US-ASTRAZENECA-2012SE02615

PATIENT
  Sex: Female

DRUGS (1)
  1. NEXIUM [Suspect]
     Indication: CHEST PAIN
     Route: 048
     Dates: start: 20120107

REACTIONS (2)
  - CHEST PAIN [None]
  - DRUG INEFFECTIVE FOR UNAPPROVED INDICATION [None]
